FAERS Safety Report 14930719 (Version 1)
Quarter: 2018Q2

REPORT INFORMATION
  Report Type: Other
  Country: US (occurrence: US)
  Receive Date: 20180523
  Receipt Date: 20180523
  Transmission Date: 20180711
  Serious: No
  Sender: FDA-Public Use
  Company Number: US-GREER LABORATORIES, INC.-2048343

PATIENT
  Age: 50 Year
  Sex: Female

DRUGS (31)
  1. FLONASE [Concomitant]
     Active Substance: FLUTICASONE PROPIONATE
     Route: 045
     Dates: start: 20140908, end: 20170103
  2. DOG EPITHELIUM [Concomitant]
     Active Substance: CANIS LUPUS FAMILIARIS SKIN
     Route: 023
  3. CLADOSPORIUM HERBARUM. [Concomitant]
     Active Substance: CLADOSPORIUM HERBARUM
     Route: 023
  4. EASTERN COTTONWOOD [Suspect]
     Active Substance: POPULUS DELTOIDES POLLEN
     Route: 023
  5. EPINEPHRINE. [Concomitant]
     Active Substance: EPINEPHRINE
     Route: 030
     Dates: start: 20140908
  6. POLLENS - TREES, CEDAR, RED JUNIPERUS VIRGINIANA [Concomitant]
     Active Substance: JUNIPERUS VIRGINIANA POLLEN
     Route: 023
  7. POLLENS - TREES, CEDAR, MOUNTAIN JUNIPERUS ASHEI [Concomitant]
     Active Substance: JUNIPERUS ASHEI POLLEN
     Route: 023
  8. BIRCH MIX [Concomitant]
     Active Substance: BETULA NIGRA POLLEN\BETULA POPULIFOLIA POLLEN
     Route: 023
  9. JOHNSON GRASS [Concomitant]
     Active Substance: SORGHUM HALEPENSE POLLEN
     Route: 023
  10. POLLENS - TREES, SYCAMORE, AMERICAN (EASTERN) PLATANUS OCCIDENTALLIS [Concomitant]
     Active Substance: PLATANUS OCCIDENTALIS POLLEN
     Route: 023
  11. ASH MIX [Concomitant]
     Route: 023
  12. ZYRTEC [Concomitant]
     Active Substance: CETIRIZINE HYDROCHLORIDE
     Route: 048
     Dates: start: 20140908, end: 20161226
  13. TALCONEX [Concomitant]
     Route: 061
     Dates: start: 201409
  14. ALLERGENIC EXTRACT- MITE, DERMATOPHAGOIDES FARINAE [Suspect]
     Active Substance: DERMATOPHAGOIDES FARINAE
     Indication: ALLERGY TEST
     Route: 050
  15. STANDARDIZED CAT HAIR [Concomitant]
     Active Substance: FELIS CATUS HAIR
     Route: 023
  16. ALTERNARIA ALTERNATA. [Concomitant]
     Active Substance: ALTERNARIA ALTERNATA
     Route: 023
  17. ASPERGILLUS FUMIGATUS. [Concomitant]
     Active Substance: ASPERGILLUS FUMIGATUS
     Route: 023
  18. POLLENS - TREES, ELM, AMERICAN ULMUS AMERICANA [Concomitant]
     Active Substance: ULMUS AMERICANA POLLEN
     Route: 023
  19. COMMON MUGWORT POLLEN [Suspect]
     Active Substance: ARTEMISIA VULGARIS POLLEN
     Route: 023
  20. ADVIL [Concomitant]
     Active Substance: IBUPROFEN
     Route: 048
     Dates: start: 200104
  21. EASTERN OAK MIX [Concomitant]
     Route: 023
  22. BOX ELDER [Concomitant]
     Active Substance: ACER NEGUNDO POLLEN
     Route: 023
  23. POSITIVE SKIN TEST CONTROL - HISTAMINE [Concomitant]
     Active Substance: HISTAMINE
     Route: 023
  24. NUTRAMETRIX [Concomitant]
     Route: 048
     Dates: start: 201501
  25. INSECTS (WHOLE BODY) COCKROACH MIX [Concomitant]
     Active Substance: BLATELLA GERMANICA\PERIPLANETA AMERICANA
     Route: 023
  26. PLACEBO [Concomitant]
     Active Substance: UNSPECIFIED INGREDIENT
     Route: 023
  27. ALEVE [Concomitant]
     Active Substance: NAPROXEN SODIUM
     Route: 048
     Dates: start: 200104
  28. STANDARDIZED MITE, DERMATOPHAGOIDES PTERONYSSINUS [Suspect]
     Active Substance: DERMATOPHAGOIDES PTERONYSSINUS
     Route: 023
  29. 7 GRASS MIX [Suspect]
     Active Substance: AGROSTIS GIGANTEA POLLEN\ANTHOXANTHUM ODORATUM\DACTYLIS GLOMERATA\FESTUCA PRATENSIS\LOLIUM PERENNE\PHLEUM PRATENSE\POA PRATENSIS
     Route: 023
  30. COMMON WEED MIX [Concomitant]
     Route: 023
  31. SHORT/GIANT RAGWEED MIXTURE [Suspect]
     Active Substance: AMBROSIA ARTEMISIIFOLIA POLLEN\AMBROSIA TRIFIDA POLLEN
     Route: 023

REACTIONS (1)
  - Dermatitis allergic [Recovered/Resolved]

NARRATIVE: CASE EVENT DATE: 20161213
